FAERS Safety Report 18965515 (Version 1)
Quarter: 2021Q1

REPORT INFORMATION
  Report Type: Report from Study
  Country: US (occurrence: US)
  Receive Date: 20210303
  Receipt Date: 20210303
  Transmission Date: 20210420
  Serious: Yes (Hospitalization)
  Sender: FDA-Public Use
  Company Number: US-SEATTLE GENETICS-2020SGN05703

PATIENT
  Sex: Female

DRUGS (1)
  1. TUCATINIB [Suspect]
     Active Substance: TUCATINIB
     Indication: BREAST CANCER FEMALE
     Dosage: UNK
     Route: 048

REACTIONS (11)
  - Post procedural complication [Unknown]
  - Endoscopic retrograde cholangiopancreatography [Unknown]
  - Tenderness [Unknown]
  - Palmar-plantar erythrodysaesthesia syndrome [Unknown]
  - Laboratory test abnormal [Unknown]
  - Bile duct stent insertion [Unknown]
  - Unevaluable event [Unknown]
  - Diarrhoea [Unknown]
  - Nausea [Unknown]
  - Pain in extremity [Unknown]
  - Abdominal hernia repair [Unknown]
